FAERS Safety Report 13322173 (Version 1)
Quarter: 2017Q1

REPORT INFORMATION
  Report Type: Spontaneous
  Country: None (occurrence: IT)
  Receive Date: 20170310
  Receipt Date: 20170310
  Transmission Date: 20170428
  Serious: Yes (Hospitalization)
  Sender: FDA-Public Use
  Company Number: IT-MEDAC PHARMA, INC.-1064113

PATIENT
  Age: 62 Year
  Sex: Male

DRUGS (5)
  1. METHOTREXATE. [Suspect]
     Active Substance: METHOTREXATE
     Indication: PSORIATIC ARTHROPATHY
     Route: 030
     Dates: start: 20030101
  2. FOLIC ACID. [Concomitant]
     Active Substance: FOLIC ACID
  3. HUMIRA [Suspect]
     Active Substance: ADALIMUMAB
     Route: 058
     Dates: start: 20160831
  4. TARGIN [Concomitant]
     Active Substance: NALOXONE HYDROCHLORIDE\OXYCODONE HYDROCHLORIDE
  5. DIBASE [Concomitant]
     Active Substance: CHOLECALCIFEROL

REACTIONS (1)
  - Myocardial infarction [Recovering/Resolving]

NARRATIVE: CASE EVENT DATE: 20170125
